FAERS Safety Report 5039931-0 (Version None)
Quarter: 2006Q2

REPORT INFORMATION
  Report Type: 
  Country: None (occurrence: None)
  Receive Date: 20060601
  Receipt Date: 20060308
  Transmission Date: 20061013
  Serious: No
  Sender: FDA-Public Use
  Company Number: 2005PV004829

PATIENT
  Age: 73 Year
  Sex: Female
  Weight: 90.7194 kg

DRUGS (14)
  1. BYETTA [Suspect]
     Indication: DIABETES MELLITUS NON-INSULIN-DEPENDENT
     Dosage: SEE IMAGE
     Route: 058
     Dates: start: 20050923, end: 20051022
  2. BYETTA [Suspect]
     Indication: DIABETES MELLITUS NON-INSULIN-DEPENDENT
     Dosage: SEE IMAGE
     Route: 058
     Dates: start: 20051023, end: 20060307
  3. BYETTA [Suspect]
     Indication: DIABETES MELLITUS NON-INSULIN-DEPENDENT
     Dosage: SEE IMAGE
     Route: 058
     Dates: start: 20060307
  4. LANTUS [Concomitant]
  5. ATENOLOL [Concomitant]
  6. TORSEMIDE [Concomitant]
  7. ADDERALL 10 [Concomitant]
  8. CELEBREX [Concomitant]
  9. TRAMADOLOL/APAP [Concomitant]
  10. LIPITOR [Concomitant]
  11. CENTRUM SILVER [Concomitant]
  12. BIOTIN [Concomitant]
  13. HUMALOG [Concomitant]
  14. HUMULIN 50/50 [Concomitant]

REACTIONS (5)
  - BLOOD GLUCOSE DECREASED [None]
  - DECREASED APPETITE [None]
  - HYPOGLYCAEMIA [None]
  - VOMITING [None]
  - WEIGHT DECREASED [None]
